FAERS Safety Report 4587704-5 (Version None)
Quarter: 2005Q1

REPORT INFORMATION
  Report Type: 
  Country: None (occurrence: None)
  Receive Date: 20050125
  Receipt Date: 20040914
  Transmission Date: 20050727
  Serious: No
  Sender: FDA-Public Use
  Company Number: USA030434819

PATIENT
  Age: 86 Year
  Sex: Female
  Weight: 56 kg

DRUGS (3)
  1. FORTEO [Suspect]
     Dosage: 20 UG DAY
     Dates: start: 20030414
  2. CALCIUM WITH VITAMIN D [Concomitant]
  3. ACTONEL [Concomitant]

REACTIONS (4)
  - ARTHRALGIA [None]
  - BACK PAIN [None]
  - HIP FRACTURE [None]
  - SPINAL FRACTURE [None]
